FAERS Safety Report 9660807 (Version 1)
Quarter: 2013Q4

REPORT INFORMATION
  Report Type: Spontaneous
  Country: GB (occurrence: GB)
  Receive Date: 20131031
  Receipt Date: 20131031
  Transmission Date: 20140711
  Serious: Yes (Other)
  Sender: FDA-Public Use
  Company Number: GB-GLAXOSMITHKLINE-B0935548A

PATIENT
  Sex: 0

DRUGS (1)
  1. NIQUITIN CQ 21MG [Suspect]
     Indication: PRODUCT USED FOR UNKNOWN INDICATION
     Dosage: 21MG UNKNOWN
     Route: 062

REACTIONS (1)
  - Crohn^s disease [Unknown]
